FAERS Safety Report 4767471-2 (Version None)
Quarter: 2005Q3

REPORT INFORMATION
  Report Type: 
  Country: None (occurrence: None)
  Receive Date: 20050912
  Receipt Date: 20050831
  Transmission Date: 20060218
  Serious: Yes (Death)
  Sender: FDA-Public Use
  Company Number: 2005S1005906

PATIENT
  Age: 69 Year
  Sex: Male
  Weight: 93.441 kg

DRUGS (6)
  1. FENTANYL [Suspect]
     Indication: BACK PAIN
     Dosage: 25 MCG/HR;Q3D; TDER
     Dates: start: 20050630, end: 20050706
  2. FENTANYL [Suspect]
     Indication: PAIN IN EXTREMITY
     Dosage: 25 MCG/HR;Q3D; TDER
     Dates: start: 20050630, end: 20050706
  3. LEVOTHYROXINE SODIUM [Concomitant]
  4. DILTIAZEM [Concomitant]
  5. FUROSEMIDE [Concomitant]
  6. POTASSIUM CHLORIDE [Concomitant]

REACTIONS (5)
  - DRUG WITHDRAWAL SYNDROME [None]
  - HALLUCINATION [None]
  - HYPERHIDROSIS [None]
  - SOMNOLENCE [None]
  - UNRESPONSIVE TO PAIN STIMULI [None]
